FAERS Safety Report 17255961 (Version 1)
Quarter: 2020Q1

REPORT INFORMATION
  Report Type: Spontaneous
  Country: US (occurrence: US)
  Receive Date: 20200110
  Receipt Date: 20200110
  Transmission Date: 20200409
  Serious: No
  Sender: FDA-Public Use
  Company Number: US-SERB S.A.S.-2078797

PATIENT
  Age: 82 Year
  Sex: Male

DRUGS (2)
  1. INSULIN [Concomitant]
     Active Substance: INSULIN NOS
  2. CYANOKIT [Suspect]
     Active Substance: HYDROXOCOBALAMIN
     Indication: VASOPLEGIA SYNDROME
     Route: 042
     Dates: start: 20190201, end: 20190201

REACTIONS (2)
  - Product use in unapproved indication [Unknown]
  - Laboratory test interference [Unknown]

NARRATIVE: CASE EVENT DATE: 20190201
